FAERS Safety Report 9026417 (Version 1)
Quarter: 2013Q1

REPORT INFORMATION
  Report Type: Spontaneous
  Country: US (occurrence: US)
  Receive Date: 20130123
  Receipt Date: 20130123
  Transmission Date: 20140127
  Serious: Yes (Other)
  Sender: FDA-Public Use
  Company Number: US-JNJFOC-20130104628

PATIENT
  Age: 79 Year
  Sex: Female
  Weight: 98.88 kg

DRUGS (5)
  1. NEOSPORIN PLUS PAIN RELIEF NEO TO GO [Suspect]
     Indication: SKIN INFECTION
     Dosage: A 50 CENT PIECE SIZE
     Route: 061
     Dates: start: 20121220, end: 20121220
  2. PLAVIX [Concomitant]
     Route: 065
  3. LIPITOR [Concomitant]
     Route: 065
  4. BABY ASPIRIN [Concomitant]
     Route: 065
  5. PROPORAL [Concomitant]
     Route: 065

REACTIONS (1)
  - Burns second degree [Recovering/Resolving]
